FAERS Safety Report 24796534 (Version 1)
Quarter: 2024Q4

REPORT INFORMATION
  Report Type: Spontaneous
  Country: US (occurrence: None)
  Receive Date: 20241231
  Receipt Date: 20241231
  Transmission Date: 20250114
  Serious: No
  Sender: Public
  Company Number: None

PATIENT
  Age: 63 Year
  Sex: Female

DRUGS (6)
  1. REPATHA [Suspect]
     Active Substance: EVOLOCUMAB
     Indication: Hypercholesterolaemia
     Dosage: OTHER FREQUENCY : EVERY 14 DAYS;?
     Route: 058
     Dates: start: 20230922, end: 20241209
  2. ASPIRIN [Concomitant]
     Active Substance: ASPIRIN
  3. LOSARTAN [Concomitant]
     Active Substance: LOSARTAN
  4. EZETIMIBE [Concomitant]
     Active Substance: EZETIMIBE
  5. TRULICITY [Concomitant]
     Active Substance: DULAGLUTIDE
  6. ADBRY [Concomitant]
     Active Substance: TRALOKINUMAB-LDRM

REACTIONS (4)
  - Dyspnoea [None]
  - Dizziness [None]
  - Fatigue [None]
  - Therapy interrupted [None]

NARRATIVE: CASE EVENT DATE: 20241230
